FAERS Safety Report 5713042-0 (Version None)
Quarter: 2008Q2

REPORT INFORMATION
  Report Type: 
  Country: None (occurrence: None)
  Receive Date: 20080418
  Receipt Date: 20080404
  Transmission Date: 20081010
  Serious: Yes (Death)
  Sender: FDA-Public Use
  Company Number: 2008026970

PATIENT
  Age: 74 Year
  Sex: Female
  Weight: 49 kg

DRUGS (9)
  1. FRAGMIN [Suspect]
     Indication: THROMBOSIS PROPHYLAXIS
     Dosage: 2500 I.U. (2500 I.U., 1 IN 24 HR), SUBCUTANEOUS
     Route: 058
     Dates: start: 20080213, end: 20080214
  2. ARIXTRA [Suspect]
     Indication: THROMBOSIS PROPHYLAXIS
     Dosage: 2.5 MG, SUBCUTANEOUS
     Route: 058
     Dates: start: 20080214, end: 20080223
  3. HEPARIN SODIUM [Suspect]
     Indication: THROMBOSIS PROPHYLAXIS
     Dosage: 300 TO 600 UNITS, INTRAVENOUS
     Route: 042
     Dates: start: 20080228, end: 20080228
  4. MICARDIS [Concomitant]
  5. URSO 250 [Concomitant]
  6. CEFOTIAM HYDROCHLORIDE [Concomitant]
  7. FLOMOX (CEFCAPENE PIVOXIL HYDROCHLORIDE) [Concomitant]
  8. RANITIDINE HYDROCHLORIDE [Concomitant]
  9. ESPO (EPOETIN ALFA) [Concomitant]

REACTIONS (3)
  - CEREBRAL HAEMORRHAGE [None]
  - HEPARIN-INDUCED THROMBOCYTOPENIA [None]
  - THERAPEUTIC PRODUCT INEFFECTIVE [None]
